FAERS Safety Report 8567914-2 (Version None)
Quarter: 2012Q3

REPORT INFORMATION
  Report Type: 
  Country: None (occurrence: None)
  Receive Date: 20120803
  Receipt Date: 20120725
  Transmission Date: 20120928
  Serious: Yes (Other)
  Sender: FDA-Public Use
  Company Number: IT-ASTRAZENECA-2012SE53245

PATIENT
  Age: 22291 Day
  Sex: Female

DRUGS (1)
  1. NEXIUM [Suspect]
     Indication: HYPERCHLORHYDRIA
     Route: 048
     Dates: start: 20120701, end: 20120706

REACTIONS (3)
  - IRRITABILITY [None]
  - SUICIDAL IDEATION [None]
  - DEPRESSION [None]
